FAERS Safety Report 9454059 (Version 2)
Quarter: 2013Q3

REPORT INFORMATION
  Report Type: Spontaneous
  Country: US (occurrence: US)
  Receive Date: 20130812
  Receipt Date: 20130829
  Transmission Date: 20140515
  Serious: Yes (Death)
  Sender: FDA-Public Use
  Company Number: US-B.I. PHARMACEUTICALS,INC./RIDGEFIELD-2013-BI-24292BP

PATIENT
  Age: 69 Day
  Sex: Female
  Weight: 54 kg

DRUGS (7)
  1. PRADAXA [Suspect]
     Indication: ATRIAL FIBRILLATION
     Dosage: 300 MG
     Route: 048
     Dates: start: 201304
  2. METFORMIN [Concomitant]
  3. DONEPEZIL [Concomitant]
  4. ZOCOR [Concomitant]
  5. TRAZODONE [Concomitant]
  6. SINGULAIR [Concomitant]
  7. MULTAQ [Concomitant]

REACTIONS (2)
  - Haemorrhage intracranial [Fatal]
  - Movement disorder [Unknown]
